FAERS Safety Report 5657797-2 (Version None)
Quarter: 2008Q1

REPORT INFORMATION
  Report Type: 
  Country: None (occurrence: None)
  Receive Date: 20080310
  Receipt Date: 20070803
  Transmission Date: 20080703
  Serious: Yes (Hospitalization)
  Sender: FDA-Public Use
  Company Number: US-ASTRAZENECA-2007UW18818

PATIENT
  Age: 21922 Day
  Sex: Male

DRUGS (8)
  1. ZESTRIL [Suspect]
     Route: 048
     Dates: start: 20020801, end: 20020819
  2. LOPRESSOR [Suspect]
  3. PLAVIX [Suspect]
  4. VIOXX [Suspect]
  5. ASPIRIN [Suspect]
  6. LIPITOR [Suspect]
     Dates: end: 20020820
  7. GLYBURIDE [Concomitant]
     Dosage: 5 MG QAM, 7.5 MG P.M.
  8. AXID [Concomitant]

REACTIONS (4)
  - HYPERSENSITIVITY [None]
  - MYALGIA [None]
  - OEDEMA PERIPHERAL [None]
  - PAIN IN EXTREMITY [None]
